FAERS Safety Report 6521537-5 (Version None)
Quarter: 2009Q4

REPORT INFORMATION
  Report Type: 
  Country: None (occurrence: None)
  Receive Date: 20091230
  Receipt Date: 20091221
  Transmission Date: 20100525
  Serious: Yes (Other)
  Sender: FDA-Public Use
  Company Number: SE-ABBOTT-09P-150-0614153-00

PATIENT
  Age: 72 Year
  Sex: Male

DRUGS (11)
  1. NIASPAN [Suspect]
     Indication: DRUG USE FOR UNKNOWN INDICATION
     Dosage: COMMENT:    FORM: PROLONGED-RELEASE TABLET
     Route: 048
     Dates: start: 20091201
  2. BOSENTAN [Concomitant]
     Indication: DRUG USE FOR UNKNOWN INDICATION
     Dosage: COMMENT:
  3. SPIRIVA [Concomitant]
     Indication: DRUG USE FOR UNKNOWN INDICATION
     Route: 055
  4. NASONEX [Concomitant]
     Indication: DRUG USE FOR UNKNOWN INDICATION
     Dosage: COMMENT:   UNIT DOSE:    50 MICROG/DOSE
     Route: 045
  5. THERALEN [Concomitant]
     Indication: DRUG USE FOR UNKNOWN INDICATION
     Dosage: COMMENT:   FORM OF ADMIN.:
  6. WARFARIN SODIUM [Concomitant]
     Indication: DRUG USE FOR UNKNOWN INDICATION
  7. ORALOVITE [Concomitant]
     Indication: DRUG USE FOR UNKNOWN INDICATION
  8. FUROSEMID [Concomitant]
     Indication: DRUG USE FOR UNKNOWN INDICATION
  9. NIFEDIPINE [Concomitant]
     Indication: DRUG USE FOR UNKNOWN INDICATION
  10. BISOPROLOL [Concomitant]
     Indication: DRUG USE FOR UNKNOWN INDICATION
     Dosage: COMMENT:   FORM OF ADMIN.:
  11. OXYGEN [Concomitant]
     Indication: DRUG USE FOR UNKNOWN INDICATION
     Route: 055

REACTIONS (2)
  - DYSPNOEA [None]
  - FATIGUE [None]
